FAERS Safety Report 25213878 (Version 1)
Quarter: 2025Q2

REPORT INFORMATION
  Report Type: Report from Study
  Country: US (occurrence: US)
  Receive Date: 20250418
  Receipt Date: 20250418
  Transmission Date: 20250717
  Serious: Yes (Other)
  Sender: ABBVIE
  Company Number: US-ABBVIE-6231814

PATIENT
  Age: 71 Year
  Sex: Male

DRUGS (1)
  1. RINVOQ [Suspect]
     Active Substance: UPADACITINIB
     Indication: Rheumatoid arthritis
     Route: 048
     Dates: start: 20210802

REACTIONS (6)
  - Arterial angioplasty [Unknown]
  - Knee arthroplasty [Not Recovered/Not Resolved]
  - Arterial bypass operation [Unknown]
  - Dyspnoea [Unknown]
  - Rheumatoid arthritis [Unknown]
  - Arterial stent insertion [Unknown]

NARRATIVE: CASE EVENT DATE: 20240601
